FAERS Safety Report 4878290-0 (Version None)
Quarter: 2006Q1

REPORT INFORMATION
  Report Type: 
  Country: None (occurrence: None)
  Receive Date: 20060111
  Receipt Date: 20051005
  Transmission Date: 20060701
  Serious: Yes (Hospitalization)
  Sender: FDA-Public Use
  Company Number: US-MERCK-0510USA04700

PATIENT
  Age: 68 Year
  Sex: Female
  Weight: 74 kg

DRUGS (6)
  1. VIOXX [Suspect]
     Indication: OSTEOARTHRITIS
     Route: 048
     Dates: start: 20000710
  2. CALAN [Concomitant]
     Route: 065
  3. SYNTHROID [Concomitant]
     Route: 065
  4. CALCIUM (UNSPECIFIED) [Concomitant]
     Route: 065
  5. ASCORBIC ACID [Concomitant]
     Route: 065
  6. VITAMIN E [Concomitant]
     Route: 065

REACTIONS (6)
  - CARDIOVASCULAR DISORDER [None]
  - DEPRESSION [None]
  - FALL [None]
  - INTESTINAL FUNCTIONAL DISORDER [None]
  - LARGE INTESTINE PERFORATION [None]
  - MYOCARDIAL INFARCTION [None]
